FAERS Safety Report 14858940 (Version 2)
Quarter: 2018Q3

REPORT INFORMATION
  Report Type: Report from Study
  Country: US (occurrence: US)
  Receive Date: 20180508
  Receipt Date: 20180706
  Transmission Date: 20181010
  Serious: Yes (Death)
  Sender: FDA-Public Use
  Company Number: US-CIPLA (EU) LIMITED-2018US17276

PATIENT

DRUGS (3)
  1. IRINOTECAN [Suspect]
     Active Substance: IRINOTECAN
     Dosage: 250 MG/M2 ON DAY 1 EVERY 21 DAYS
     Route: 065
  2. IRINOTECAN [Suspect]
     Active Substance: IRINOTECAN
     Indication: SMALL CELL LUNG CANCER
     Dosage: 300 MG/M2 ON DAY 1 EVERY 21 DAYS
     Route: 065
  3. PEMBROLIZUMAB. [Suspect]
     Active Substance: PEMBROLIZUMAB
     Indication: SMALL CELL LUNG CANCER
     Dosage: 2 MG/KG OVER 30 MIN EVERY 21 DAYS

REACTIONS (6)
  - Diarrhoea [Unknown]
  - Pain in extremity [Unknown]
  - Death [Fatal]
  - Nasal congestion [Unknown]
  - Hypernatraemia [Unknown]
  - Nausea [Unknown]
